FAERS Safety Report 6593391-7 (Version None)
Quarter: 2010Q1

REPORT INFORMATION
  Report Type: 
  Country: None (occurrence: None)
  Receive Date: 20100222
  Receipt Date: 20090319
  Transmission Date: 20100710
  Serious: No
  Sender: FDA-Public Use
  Company Number: US-BRISTOL-MYERS SQUIBB COMPANY-14552533

PATIENT
  Age: 74 Year
  Sex: Male
  Weight: 111 kg

DRUGS (7)
  1. ORENCIA [Suspect]
     Indication: RHEUMATOID ARTHRITIS
     Dosage: RECEIVED FIRST INFUSION
     Dates: start: 20090313
  2. VERELAN [Concomitant]
  3. CARDURA [Concomitant]
  4. COLCHICINE [Concomitant]
  5. DAYPRO [Concomitant]
  6. FOSINOPRIL SODIUM [Concomitant]
  7. ASPIRIN [Concomitant]

REACTIONS (1)
  - ARTHRALGIA [None]
